FAERS Safety Report 8855667 (Version 1)
Quarter: 2012Q4

REPORT INFORMATION
  Report Type: Spontaneous
  Country: US (occurrence: None)
  Receive Date: 20121019
  Receipt Date: 20121019
  Transmission Date: 20130627
  Serious: No
  Sender: FDA-Public Use
  Company Number: None

PATIENT
  Age: 25 Year
  Sex: Female
  Weight: 65.77 kg

DRUGS (2)
  1. CYMBALTA 30 MG LILLY [Suspect]
     Indication: DEPRESSION
  2. CYMBALTA 30 MG LILLY [Suspect]
     Indication: BACK PAIN

REACTIONS (11)
  - Movement disorder [None]
  - Dysstasia [None]
  - Frequent bowel movements [None]
  - Dizziness [None]
  - Mydriasis [None]
  - Tremor [None]
  - Palpitations [None]
  - Hyperhidrosis [None]
  - Chills [None]
  - Feeling abnormal [None]
  - Decreased appetite [None]
